FAERS Safety Report 10903323 (Version 2)
Quarter: 2015Q2

REPORT INFORMATION
  Report Type: Spontaneous
  Country: US (occurrence: US)
  Receive Date: 20150311
  Receipt Date: 20150625
  Transmission Date: 20150821
  Serious: Yes (Life-Threatening)
  Sender: FDA-Public Use
  Company Number: US-BRISTOL-MYERS SQUIBB COMPANY-BMS-2015-012672

PATIENT
  Sex: Female

DRUGS (1)
  1. SPRYCEL [Suspect]
     Active Substance: DASATINIB
     Indication: MENINGIOMA MALIGNANT
     Dosage: 300 MG, UNK
     Route: 065

REACTIONS (2)
  - Rash erythematous [Recovered/Resolved]
  - Salivary hypersecretion [Unknown]
